FAERS Safety Report 8435760-6 (Version None)
Quarter: 2012Q2

REPORT INFORMATION
  Report Type: 
  Country: None (occurrence: None)
  Receive Date: 20120608
  Receipt Date: 20120504
  Transmission Date: 20120825
  Serious: Yes (Death, Life-Threatening, Other)
  Sender: FDA-Public Use
  Company Number: 2012SP023580

PATIENT
  Age: 38 Year
  Sex: Male

DRUGS (3)
  1. TEMODAL [Suspect]
     Indication: OLIGODENDROGLIOMA
     Dosage: 190 MG;QD;PO
     Route: 048
     Dates: start: 20090122, end: 20090822
  2. PREDNISOLONE [Concomitant]
  3. CARMUSTINE [Suspect]
     Indication: OLIGODENDROGLIOMA
     Dosage: 260 MG;ONCE;IV
     Route: 042
     Dates: start: 20090122, end: 20090819

REACTIONS (4)
  - LUNG DISORDER [None]
  - DYSPNOEA [None]
  - ACUTE RESPIRATORY FAILURE [None]
  - GENERAL PHYSICAL HEALTH DETERIORATION [None]
